FAERS Safety Report 5110489-0 (Version None)
Quarter: 2006Q3

REPORT INFORMATION
  Report Type: 
  Country: None (occurrence: None)
  Receive Date: 20060918
  Receipt Date: 20060908
  Transmission Date: 20061208
  Serious: Yes (Hospitalization)
  Sender: FDA-Public Use
  Company Number: FRWYE878608SEP06

PATIENT
  Age: 60 Year
  Sex: Female

DRUGS (10)
  1. TAZOCILLINE (PIPERACILLIN/TAZOBACTAM, INJECTION) [Suspect]
     Indication: PERITONITIS
     Dosage: INTRAVENOUS
     Route: 042
     Dates: start: 20060704, end: 20060707
  2. TAVANIC (LEVOFLOXACIN, , 0) [Suspect]
     Indication: PERITONITIS
     Dosage: 500 MG 1X PER 1 DAY ORAL
     Route: 048
     Dates: start: 20060704, end: 20060706
  3. TRIVASTATL (PIRIBEDIL) [Concomitant]
  4. LEXOMIL (BROMAZEPAM) [Concomitant]
  5. ATENOLOL [Concomitant]
  6. INEXIUM (ESOMEPRAZOLE) [Concomitant]
  7. FONZYLANE (BUFLOMEDIL HYDROCHLORIDE) [Concomitant]
  8. IMODIUM (LOPERAMINE HYDROCHLORIDE) [Concomitant]
  9. OMEPRAZOLE [Concomitant]
  10. LOVENOX [Concomitant]

REACTIONS (5)
  - ANURIA [None]
  - CIRCULATORY COLLAPSE [None]
  - DEHYDRATION [None]
  - MALAISE [None]
  - RENAL FAILURE ACUTE [None]
